FAERS Safety Report 9310346 (Version 3)
Quarter: 2013Q2

REPORT INFORMATION
  Report Type: Spontaneous
  Country: ZA (occurrence: ZA)
  Receive Date: 20130527
  Receipt Date: 20130617
  Transmission Date: 20140414
  Serious: Yes (Death, Other)
  Sender: FDA-Public Use
  Company Number: ZA-PFIZER INC-2013160341

PATIENT
  Age: 73 Year
  Sex: Female
  Weight: 50 kg

DRUGS (1)
  1. CELEBREX [Suspect]
     Indication: ARTHRITIS
     Dosage: 200 MG, 1X/DAY
     Route: 048
     Dates: start: 201210, end: 201302

REACTIONS (7)
  - Incorrect drug administration duration [Fatal]
  - Aortic thrombosis [Fatal]
  - Nephrotic syndrome [Not Recovered/Not Resolved]
  - Renal failure [Unknown]
  - Sepsis [Not Recovered/Not Resolved]
  - Oedema [Unknown]
  - Hypercholesterolaemia [Unknown]
